FAERS Safety Report 7814865-4 (Version None)
Quarter: 2011Q4

REPORT INFORMATION
  Report Type: 
  Country: None (occurrence: None)
  Receive Date: 20111013
  Receipt Date: 20111013
  Transmission Date: 20120403
  Serious: Yes (Disabling)
  Sender: FDA-Public Use
  Company Number: None

PATIENT
  Sex: Male
  Weight: 120.2032 kg

DRUGS (1)
  1. ABILIFY [Suspect]
     Indication: DEPRESSION
     Dosage: 10 MG
     Dates: start: 20110401, end: 20110501

REACTIONS (5)
  - FALL [None]
  - MUSCULAR WEAKNESS [None]
  - HYPOREFLEXIA [None]
  - SPEECH DISORDER [None]
  - TREMOR [None]
